FAERS Safety Report 24848704 (Version 1)
Quarter: 2025Q1

REPORT INFORMATION
  Report Type: Spontaneous
  Country: FR (occurrence: FR)
  Receive Date: 20250116
  Receipt Date: 20250116
  Transmission Date: 20250409
  Serious: Yes (Death)
  Sender: JOHNSON AND JOHNSON
  Company Number: FR-JNJFOC-20250109808

PATIENT
  Age: 55 Year
  Sex: Male

DRUGS (11)
  1. HALOPERIDOL [Interacting]
     Active Substance: HALOPERIDOL
     Indication: Schizophrenia
  2. QUVIVIQ [Interacting]
     Active Substance: DARIDOREXANT
     Indication: Product used for unknown indication
     Dates: start: 20241109
  3. LOXAPINE SUCCINATE [Interacting]
     Active Substance: LOXAPINE SUCCINATE
     Indication: Agitation
     Dates: start: 20241109, end: 20241109
  4. CYAMEMAZINE [Interacting]
     Active Substance: CYAMEMAZINE
     Indication: Schizophrenia
     Dosage: (1/12 MILLI LITRE)
     Dates: start: 202410
  5. PERICIAZINE [Interacting]
     Active Substance: PERICIAZINE
     Indication: Schizophrenia
     Dosage: (1/12 MILLILITRE)
  6. QUETIAPINE [Interacting]
     Active Substance: QUETIAPINE
     Indication: Schizophrenia
  7. OXAZEPAM [Interacting]
     Active Substance: OXAZEPAM
     Indication: Anxiety
  8. CLOMIPRAMINE HYDROCHLORIDE [Interacting]
     Active Substance: CLOMIPRAMINE HYDROCHLORIDE
     Indication: Schizoaffective disorder depressive type
  9. LAMOTRIGINE [Interacting]
     Active Substance: LAMOTRIGINE
     Indication: Epilepsy
  10. ANETHOLTRITHION [Concomitant]
     Active Substance: ANETHOLTRITHION
     Indication: Product used for unknown indication
  11. TROPATEPINE HYDROCHLORIDE [Concomitant]
     Active Substance: TROPATEPINE HYDROCHLORIDE
     Indication: Product used for unknown indication

REACTIONS (2)
  - Death [Fatal]
  - Drug interaction [Fatal]
